FAERS Safety Report 12834925 (Version 1)
Quarter: 2016Q4

REPORT INFORMATION
  Report Type: Spontaneous
  Country: AU (occurrence: AU)
  Receive Date: 20161010
  Receipt Date: 20161010
  Transmission Date: 20170207
  Serious: Yes (Other)
  Sender: FDA-Public Use
  Company Number: AU-BAUSCH-BL-2016-024074

PATIENT
  Age: 39 Year
  Sex: Female

DRUGS (5)
  1. SOLONE [Suspect]
     Active Substance: PREDNISOLONE
     Route: 048
     Dates: start: 20160827, end: 20160827
  2. THYROXINE [Concomitant]
     Active Substance: LEVOTHYROXINE
     Indication: HYPOTHYROIDISM
     Dosage: 25-50MCG
  3. SOLONE [Suspect]
     Active Substance: PREDNISOLONE
     Indication: JOINT SWELLING
     Route: 048
     Dates: start: 20160823, end: 20160824
  4. SIGMACORT [Concomitant]
     Indication: PSORIASIS
     Dates: start: 201608
  5. SOLONE [Suspect]
     Active Substance: PREDNISOLONE
     Route: 048
     Dates: start: 20160825, end: 20160826

REACTIONS (14)
  - Bone pain [Unknown]
  - Alopecia [Unknown]
  - Insomnia [Not Recovered/Not Resolved]
  - Skin exfoliation [Unknown]
  - Blood pressure decreased [Unknown]
  - Conjunctival erosion [Unknown]
  - Dry skin [Unknown]
  - Immune system disorder [Unknown]
  - Gastrointestinal tract irritation [Unknown]
  - Tinnitus [Unknown]
  - Blood glucose decreased [Unknown]
  - Bone disorder [Unknown]
  - Dizziness [Recovering/Resolving]
  - Eye pain [Unknown]

NARRATIVE: CASE EVENT DATE: 2016
